FAERS Safety Report 6760282-8 (Version None)
Quarter: 2010Q2

REPORT INFORMATION
  Report Type: 
  Country: None (occurrence: None)
  Receive Date: 20100608
  Receipt Date: 20090601
  Transmission Date: 20101027
  Serious: No
  Sender: FDA-Public Use
  Company Number: US-BRISTOL-MYERS SQUIBB COMPANY-14654867

PATIENT
  Age: 33 Year
  Sex: Male

DRUGS (3)
  1. EFAVIRENZ TABS [Suspect]
     Dates: end: 20090508
  2. RALTEGRAVIR [Suspect]
     Dosage: FORMULATION TABS
     Dates: start: 20090508
  3. TRUVADA [Concomitant]

REACTIONS (3)
  - APHTHOUS STOMATITIS [None]
  - HYPERHIDROSIS [None]
  - NIGHT SWEATS [None]
